FAERS Safety Report 6720613-1 (Version None)
Quarter: 2010Q2

REPORT INFORMATION
  Report Type: 
  Country: None (occurrence: None)
  Receive Date: 20100510
  Receipt Date: 20091209
  Transmission Date: 20101027
  Serious: Yes (Other)
  Sender: FDA-Public Use
  Company Number: 07-002378

PATIENT
  Age: 43 Year
  Sex: Female
  Weight: 58.05 kg

DRUGS (2)
  1. TACLONEX [Suspect]
     Indication: ECZEMA
     Dosage: 3 APPLICATION (3 IN 1 D), TOPICAL
     Route: 061
     Dates: start: 20071101, end: 20071203
  2. DIOVAN [Concomitant]

REACTIONS (6)
  - BLOOD PRESSURE INCREASED [None]
  - DECREASED APPETITE [None]
  - HEADACHE [None]
  - HEART RATE INCREASED [None]
  - INSOMNIA [None]
  - OFF LABEL USE [None]
